FAERS Safety Report 4630186-5 (Version None)
Quarter: 2005Q2

REPORT INFORMATION
  Report Type: 
  Country: None (occurrence: None)
  Receive Date: 20050406
  Receipt Date: 20050318
  Transmission Date: 20051028
  Serious: Yes (Hospitalization)
  Sender: FDA-Public Use
  Company Number: DK-SANOFI-SYNTHELABO-F01200500429

PATIENT
  Sex: Female

DRUGS (11)
  1. OXALIPLATIN - SOLUTION - 60 MG/M2 [Suspect]
     Indication: BILE DUCT CANCER
     Dosage: 60 MG/M2 Q2W INTRAVENOUS NOS
     Route: 042
     Dates: start: 20041203, end: 20041203
  2. GEMCITABINE - SOLUTION - 1000 MG/M2 [Suspect]
     Dosage: 1000 MG/M2 Q2W INTRAVENOUS NOS
     Route: 042
     Dates: start: 20041203, end: 20041203
  3. CAPECITABINE - FORM: - 1250 MG/M2 [Suspect]
     Dosage: 1250 MG/M2 FROM D1 TO 7 THEN FROM D15 TO 24 Q4W ORAL
     Route: 048
     Dates: end: 20041203
  4. RAMIPRIL [Concomitant]
  5. IRON SUPPLEMENT NOS (IRON) [Concomitant]
  6. SPIRON (SPIRONOLACTONE) [Concomitant]
  7. PAMOL (PARACETAMOL) [Concomitant]
  8. LACTULOSE [Concomitant]
  9. BUCLIZINE [Concomitant]
  10. DOLOL (TRAMADOL) [Concomitant]
  11. HALOPERIDOL [Concomitant]

REACTIONS (5)
  - AMNESIA [None]
  - BLOOD GLUCOSE INCREASED [None]
  - CONFUSIONAL STATE [None]
  - INFECTION [None]
  - LIVER FUNCTION TEST ABNORMAL [None]
